FAERS Safety Report 6137818-3 (Version None)
Quarter: 2009Q1

REPORT INFORMATION
  Report Type: 
  Country: None (occurrence: None)
  Receive Date: 20090331
  Receipt Date: 20090320
  Transmission Date: 20090719
  Serious: Yes (Hospitalization)
  Sender: FDA-Public Use
  Company Number: US-AMGEN-QUU339624

PATIENT
  Sex: Female

DRUGS (2)
  1. ENBREL [Suspect]
     Indication: PSORIATIC ARTHROPATHY
     Route: 058
     Dates: start: 20090130
  2. ENBREL [Suspect]
     Indication: PSORIASIS

REACTIONS (4)
  - BLOOD IRON ABNORMAL [None]
  - DYSPNOEA [None]
  - HAEMOGLOBIN ABNORMAL [None]
  - TACHYCARDIA [None]
